FAERS Safety Report 17052947 (Version 1)
Quarter: 2019Q4

REPORT INFORMATION
  Report Type: Spontaneous
  Country: US (occurrence: US)
  Receive Date: 20191022
  Receipt Date: 20191022
  Transmission Date: 20200122
  Serious: Yes (Hospitalization)
  Sender: FDA-Public Use
  Company Number: None

PATIENT
  Sex: Male

DRUGS (1)
  1. ABIRATERONE ACETATE 250MG APOTEX [Suspect]
     Active Substance: ABIRATERONE ACETATE
     Route: 048
     Dates: start: 20071113

REACTIONS (4)
  - Sepsis [None]
  - Myocardial infarction [None]
  - Urinary tract infection [None]
  - Staphylococcus test positive [None]
